FAERS Safety Report 6091424-8 (Version None)
Quarter: 2009Q1

REPORT INFORMATION
  Report Type: 
  Country: None (occurrence: None)
  Receive Date: 20090219
  Receipt Date: 20090219
  Transmission Date: 20090719
  Serious: No
  Sender: FDA-Public Use
  Company Number: None

PATIENT
  Age: 26 Year
  Sex: Male
  Weight: 122.4712 kg

DRUGS (3)
  1. ARIPIPRAZOLE [Suspect]
     Dosage: 10MG PO
     Route: 048
  2. ARIPIPRAZOLE [Concomitant]
  3. HALOPERIDOL IMR [Concomitant]

REACTIONS (2)
  - DIZZINESS [None]
  - HEART RATE INCREASED [None]
